FAERS Safety Report 18747664 (Version 3)
Quarter: 2021Q1

REPORT INFORMATION
  Report Type: Spontaneous
  Country: US (occurrence: US)
  Receive Date: 20210115
  Receipt Date: 20210312
  Transmission Date: 20210419
  Serious: Yes (Hospitalization)
  Sender: FDA-Public Use
  Company Number: US-ALLERGAN-2101884US

PATIENT
  Sex: Male
  Weight: .91 kg

DRUGS (1)
  1. BOTOX [Suspect]
     Active Substance: ONABOTULINUMTOXINA
     Indication: EXPOSURE DURING PREGNANCY
     Dosage: UNK UNK, SINGLE
     Route: 064
     Dates: start: 20190710, end: 20190710

REACTIONS (3)
  - Thyroid disorder [Unknown]
  - Premature baby [Unknown]
  - Foetal growth restriction [Recovered/Resolved]
